FAERS Safety Report 24911507 (Version 1)
Quarter: 2025Q1

REPORT INFORMATION
  Report Type: Spontaneous
  Country: US (occurrence: US)
  Receive Date: 20250131
  Receipt Date: 20250131
  Transmission Date: 20250408
  Serious: Yes (Other)
  Sender: ELI LILLY AND COMPANY
  Company Number: US-ELI_LILLY_AND_COMPANY-US202501014554

PATIENT
  Age: 62 Year
  Sex: Male

DRUGS (1)
  1. HUMALOG [Suspect]
     Active Substance: INSULIN LISPRO
     Indication: Diabetes mellitus
     Route: 058

REACTIONS (4)
  - Surgical procedure repeated [Unknown]
  - Iatrogenic injury [Unknown]
  - Visual impairment [Unknown]
  - Hypoacusis [Unknown]
